FAERS Safety Report 9244896 (Version 1)
Quarter: 2013Q1

REPORT INFORMATION
  Report Type: Spontaneous
  Country: US (occurrence: None)
  Receive Date: 20121130
  Receipt Date: 20121130
  Transmission Date: 20140127
  Serious: Yes (Other)
  Sender: FDA-Public Use
  Company Number: PHEH2011US06368

PATIENT
  Age: 34 Year
  Sex: Female

DRUGS (3)
  1. TERBINAFINE [Suspect]
     Dosage: 250MG, QD
     Dates: start: 20120907
  2. RITALIN (METHYLPHENIDATE HYDROCHLORIDE) [Concomitant]
  3. FLINTSTONE VITAMINS (VITAMINS NOS) [Concomitant]

REACTIONS (11)
  - Urticaria [None]
  - Swollen tongue [None]
  - Swelling face [None]
  - Lip swelling [None]
  - Nausea [None]
  - Oropharyngeal pain [None]
  - Headache [None]
  - Decreased appetite [None]
  - Back pain [None]
  - Myalgia [None]
  - Pain in extremity [None]
